FAERS Safety Report 23099991 (Version 1)
Quarter: 2023Q4

REPORT INFORMATION
  Report Type: Spontaneous
  Country: US (occurrence: US)
  Receive Date: 20231024
  Receipt Date: 20231024
  Transmission Date: 20240110
  Serious: No
  Sender: FDA-Public Use
  Company Number: US-APOTEX-2023AP011550

PATIENT
  Age: 83 Year
  Sex: Female

DRUGS (2)
  1. BRIMONIDINE TARTRATE/TIMOLOL MALEATE OPHTHALMIC SOLUTION [Suspect]
     Active Substance: BRIMONIDINE TARTRATE\TIMOLOL MALEATE
     Indication: Glaucoma
     Dosage: 1 GTT DROPS, BID
     Route: 047
     Dates: start: 20230721, end: 20230721
  2. DORZOLAMIDE [Concomitant]
     Active Substance: DORZOLAMIDE
     Indication: Glaucoma
     Dosage: 1 GTT DROPS, QD
     Route: 047

REACTIONS (4)
  - Ocular hyperaemia [Recovered/Resolved]
  - Abnormal sensation in eye [Recovered/Resolved]
  - Product quality issue [Unknown]
  - Eye irritation [Recovered/Resolved]

NARRATIVE: CASE EVENT DATE: 20230721
